FAERS Safety Report 12133639 (Version 1)
Quarter: 2016Q1

REPORT INFORMATION
  Report Type: Spontaneous
  Country: FR (occurrence: FR)
  Receive Date: 20160301
  Receipt Date: 20160301
  Transmission Date: 20160526
  Serious: Yes (Other)
  Sender: FDA-Public Use
  Company Number: PHHY2016FR025523

PATIENT
  Age: 5 Year
  Sex: Female
  Weight: 18.5 kg

DRUGS (5)
  1. CLAMOXYL                                /SCH/ [Suspect]
     Active Substance: AMOXICILLIN
     Indication: PYREXIA
     Route: 042
  2. CEFTAZIDIME PANPHARMA [Suspect]
     Active Substance: CEFTAZIDIME
     Indication: LUNG DISORDER
     Dosage: 20000 MG, BID
     Route: 042
     Dates: start: 20160120, end: 20160203
  3. NEBCINE [Suspect]
     Active Substance: TOBRAMYCIN
     Indication: LUNG DISORDER
     Dosage: 150 MG, QD
     Route: 042
     Dates: start: 20160120, end: 20160203
  4. AMOXICILLIN CLAVULANIC ACID SANDOZ [Suspect]
     Active Substance: AMOXICILLIN\CLAVULANIC ACID
     Indication: PYREXIA
     Dosage: 700 MG, Q8H
     Route: 042
     Dates: start: 20160118, end: 20160120
  5. CLAMOXYL /SCH/ [Suspect]
     Active Substance: AMOXICILLIN
     Route: 030

REACTIONS (1)
  - Neutropenia [Recovered/Resolved]

NARRATIVE: CASE EVENT DATE: 20160121
